FAERS Safety Report 7818262-7 (Version None)
Quarter: 2011Q4

REPORT INFORMATION
  Report Type: 
  Country: None (occurrence: None)
  Receive Date: 20111017
  Receipt Date: 20111004
  Transmission Date: 20120403
  Serious: Yes (Other)
  Sender: FDA-Public Use
  Company Number: PHHY2011US89157

PATIENT
  Age: 84 Year
  Sex: Female

DRUGS (1)
  1. BUFFERIN [Suspect]
     Indication: THROMBOSIS

REACTIONS (3)
  - BLINDNESS [None]
  - MACULAR DEGENERATION [None]
  - BLINDNESS UNILATERAL [None]
